FAERS Safety Report 19307680 (Version 1)
Quarter: 2021Q2

REPORT INFORMATION
  Report Type: Spontaneous
  Country: US (occurrence: US)
  Receive Date: 20210525
  Receipt Date: 20210525
  Transmission Date: 20210717
  Serious: No
  Sender: FDA-Public Use
  Company Number: None

PATIENT
  Age: 87 Year
  Sex: Male
  Weight: 62.14 kg

DRUGS (6)
  1. ZELBORAF [Suspect]
     Active Substance: VEMURAFENIB
     Indication: CARCINOID TUMOUR
     Dosage: ?          OTHER DOSE:2 TABS;?
     Route: 048
     Dates: start: 20201022
  2. METFORMIN [Suspect]
     Active Substance: METFORMIN HYDROCHLORIDE
  3. OMEPRAZOLE. [Suspect]
     Active Substance: OMEPRAZOLE
  4. FOLIC ACID. [Suspect]
     Active Substance: FOLIC ACID
  5. VITAMIN B12 [Suspect]
     Active Substance: CYANOCOBALAMIN
  6. LISINOPRIL. [Suspect]
     Active Substance: LISINOPRIL

REACTIONS (2)
  - Fatigue [None]
  - Somnolence [None]
